FAERS Safety Report 4490000-8 (Version None)
Quarter: 2004Q4

REPORT INFORMATION
  Report Type: 
  Country: None (occurrence: None)
  Receive Date: 20041027
  Receipt Date: 20041014
  Transmission Date: 20050328
  Serious: Yes (Death)
  Sender: FDA-Public Use
  Company Number: 2004079331

PATIENT
  Age: 56 Year
  Sex: Male

DRUGS (3)
  1. SILDENAFIL (SILDENAFIL) [Suspect]
     Indication: ILL-DEFINED DISORDER
  2. MIRTAZAPINE [Suspect]
     Indication: ILL-DEFINED DISORDER
  3. DIAZEPAM [Suspect]
     Indication: ILL-DEFINED DISORDER

REACTIONS (2)
  - DRUG SCREEN POSITIVE [None]
  - SUDDEN DEATH [None]
